FAERS Safety Report 6089045-6 (Version None)
Quarter: 2009Q1

REPORT INFORMATION
  Report Type: 
  Country: None (occurrence: None)
  Receive Date: 20090224
  Receipt Date: 20090218
  Transmission Date: 20090719
  Serious: Yes (Death, Life-Threatening)
  Sender: FDA-Public Use
  Company Number: B0541982A

PATIENT
  Age: 59 Year
  Sex: Male

DRUGS (9)
  1. ZOVIRAX [Suspect]
     Indication: DRUG USE FOR UNKNOWN INDICATION
     Route: 065
     Dates: start: 20080821
  2. TAZOCILLINE [Suspect]
     Indication: DRUG USE FOR UNKNOWN INDICATION
     Dosage: 12G PER DAY
     Route: 042
     Dates: start: 20080828, end: 20080911
  3. VANCOMYCINE [Suspect]
     Indication: DRUG USE FOR UNKNOWN INDICATION
     Route: 048
     Dates: start: 20080828, end: 20080915
  4. CYCLOSPORINE [Suspect]
     Indication: DRUG USE FOR UNKNOWN INDICATION
     Route: 048
     Dates: start: 20080821, end: 20080923
  5. TEICOPLANINE [Concomitant]
     Route: 065
     Dates: start: 20080920
  6. FORTUM [Concomitant]
     Route: 065
     Dates: start: 20080911, end: 20080916
  7. AZACTAM [Concomitant]
     Route: 065
     Dates: start: 20080920, end: 20080921
  8. CORTICOTHERAPY [Concomitant]
     Route: 065
  9. MONOCLONAL ANTIBODIES [Concomitant]
     Route: 065

REACTIONS (10)
  - CONDITION AGGRAVATED [None]
  - CONJUNCTIVAL DISORDER [None]
  - DERMATITIS BULLOUS [None]
  - GRAFT VERSUS HOST DISEASE [None]
  - MIXED LIVER INJURY [None]
  - MUCOUS MEMBRANE DISORDER [None]
  - RASH MACULO-PAPULAR [None]
  - RESPIRATORY DISORDER [None]
  - SKIN DISORDER [None]
  - TOXIC SKIN ERUPTION [None]
